FAERS Safety Report 10627406 (Version 1)
Quarter: 2014Q4

REPORT INFORMATION
  Report Type: Other
  Country: GB (occurrence: GB)
  Receive Date: 20141205
  Receipt Date: 20141205
  Transmission Date: 20150529
  Serious: Yes (Other)
  Sender: FDA-Public Use
  Company Number: GB-MYLANLABS-2014M1011877

PATIENT

DRUGS (3)
  1. ADCAL-D3 [Concomitant]
     Active Substance: CALCIUM CARBONATE\CHOLECALCIFEROL
     Indication: OSTEOARTHRITIS
     Dosage: CONTINUING
     Route: 048
     Dates: start: 201102
  2. RISEDRONATE [Suspect]
     Active Substance: RISEDRONATE SODIUM
     Indication: PROPHYLAXIS
     Dosage: 5 MG, QD (35MG/WEEK OR 5MG/DAY)
     Route: 048
     Dates: start: 20140620, end: 201408
  3. PREDNISOLONE. [Concomitant]
     Active Substance: PREDNISOLONE
     Indication: MYALGIA
     Dosage: 5 MG, UNK (CONTINUING)
     Route: 048
     Dates: start: 201102

REACTIONS (3)
  - Visual impairment [Not Recovered/Not Resolved]
  - Neovascular age-related macular degeneration [Not Recovered/Not Resolved]
  - Choroidal neovascularisation [Not Recovered/Not Resolved]

NARRATIVE: CASE EVENT DATE: 201408
